FAERS Safety Report 8499504-4 (Version None)
Quarter: 2012Q2

REPORT INFORMATION
  Report Type: 
  Country: None (occurrence: None)
  Receive Date: 20120405
  Receipt Date: 20100301
  Transmission Date: 20120825
  Serious: Yes (Hospitalization)
  Sender: FDA-Public Use
  Company Number: PHEH2010US02766

PATIENT
  Age: 86 Year

DRUGS (1)
  1. RECLAST [Suspect]
     Dates: start: 20100223, end: 20100223

REACTIONS (2)
  - PYREXIA [None]
  - ARTHRALGIA [None]
